FAERS Safety Report 5946981-6 (Version None)
Quarter: 2008Q4

REPORT INFORMATION
  Report Type: 
  Country: None (occurrence: None)
  Receive Date: 20081021
  Receipt Date: 20070917
  Transmission Date: 20090506
  Serious: Yes (Other)
  Sender: FDA-Public Use
  Company Number: HQWYE216019SEP07

PATIENT
  Age: 54 Year
  Sex: Female
  Weight: 61.29 kg

DRUGS (8)
  1. PREMARIN [Suspect]
     Indication: MENOPAUSAL SYMPTOMS
     Dosage: 1 TABLET 1X PER 1 DAY, ORAL ; 0.3 MG 1X PER 1 DAY, ORAL ; 1 TABLET 1X PER 1 DAY, ORAL
     Route: 048
     Dates: end: 20010101
  2. PREMARIN [Suspect]
     Indication: MENOPAUSAL SYMPTOMS
     Dosage: 1 TABLET 1X PER 1 DAY, ORAL ; 0.3 MG 1X PER 1 DAY, ORAL ; 1 TABLET 1X PER 1 DAY, ORAL
     Route: 048
     Dates: start: 20041129, end: 20070101
  3. PREMARIN [Suspect]
     Indication: MENOPAUSAL SYMPTOMS
     Dosage: 1 TABLET 1X PER 1 DAY, ORAL ; 0.3 MG 1X PER 1 DAY, ORAL ; 1 TABLET 1X PER 1 DAY, ORAL
     Route: 048
     Dates: start: 20070101
  4. MOBAN [Concomitant]
  5. LEVOTHYROXINE SODIUM [Concomitant]
  6. KLONOPIN [Concomitant]
  7. ARTANE [Concomitant]
  8. ACETAMINOPHEN [Concomitant]

REACTIONS (14)
  - ALOPECIA [None]
  - AMNESIA [None]
  - CONFUSIONAL STATE [None]
  - DEMENTIA [None]
  - DEPRESSION [None]
  - DIZZINESS [None]
  - DRUG INEFFECTIVE [None]
  - MIGRAINE [None]
  - MONOPARESIS [None]
  - MUSCLE SPASMS [None]
  - MUSCULAR WEAKNESS [None]
  - MYALGIA [None]
  - PRURITUS GENITAL [None]
  - VAGINAL ODOUR [None]
